FAERS Safety Report 18454608 (Version 1)
Quarter: 2020Q4

REPORT INFORMATION
  Report Type: Spontaneous
  Country: CN (occurrence: CN)
  Receive Date: 20201102
  Receipt Date: 20201102
  Transmission Date: 20210114
  Serious: Yes (Other)
  Sender: FDA-Public Use
  Company Number: CN-ASTRAZENECA-2020SF41813

PATIENT
  Age: 65 Year
  Sex: Female

DRUGS (3)
  1. ICOTINIB [Concomitant]
     Active Substance: ICOTINIB
     Indication: LUNG NEOPLASM MALIGNANT
     Dosage: 150 MG TID PO
  2. OSIMERTINIB. [Suspect]
     Active Substance: OSIMERTINIB
     Indication: LUNG NEOPLASM MALIGNANT
     Route: 048
  3. CRIZOTINIB [Concomitant]
     Active Substance: CRIZOTINIB
     Indication: LUNG NEOPLASM MALIGNANT

REACTIONS (2)
  - Drug resistance [Unknown]
  - Acquired gene mutation [Unknown]
